FAERS Safety Report 10064365 (Version 1)
Quarter: 2014Q2

REPORT INFORMATION
  Report Type: Spontaneous
  Country: US (occurrence: None)
  Receive Date: 20140407
  Receipt Date: 20140407
  Transmission Date: 20141212
  Serious: No
  Sender: FDA-Public Use
  Company Number: None

PATIENT
  Age: 55 Year
  Sex: Male
  Weight: 77.2 kg

DRUGS (1)
  1. INVANZ [Suspect]
     Indication: ABSCESS LIMB
     Route: 042
     Dates: start: 20140402, end: 20140404

REACTIONS (1)
  - Convulsion [None]
